FAERS Safety Report 8504118-3 (Version None)
Quarter: 2012Q3

REPORT INFORMATION
  Report Type: 
  Country: None (occurrence: None)
  Receive Date: 20120711
  Receipt Date: 20120702
  Transmission Date: 20120928
  Serious: Yes (Hospitalization, Disabling)
  Sender: FDA-Public Use
  Company Number: US-009507513-1205USA05360

PATIENT

DRUGS (1)
  1. FOSAMAX PLUS D [Suspect]
     Indication: OSTEOPOROSIS
     Dosage: UNK IU, UNK
     Route: 048

REACTIONS (4)
  - MEMORY IMPAIRMENT [None]
  - PAIN [None]
  - MUSCULOSKELETAL DISCOMFORT [None]
  - FEMUR FRACTURE [None]
